FAERS Safety Report 8133842-X (Version None)
Quarter: 2012Q1

REPORT INFORMATION
  Report Type: 
  Country: None (occurrence: None)
  Receive Date: 20120213
  Receipt Date: 20120208
  Transmission Date: 20120608
  Serious: Yes (Death)
  Sender: FDA-Public Use
  Company Number: FR-ASTRAZENECA-2012SE08904

PATIENT
  Age: 40 Year
  Sex: Male

DRUGS (4)
  1. XANAX [Suspect]
     Indication: SCHIZOPHRENIA
     Dosage: 1 DF IN THE MORNING AND 1 DF IN THE EVENING
     Route: 065
  2. RISPERDAL [Suspect]
     Indication: SCHIZOPHRENIA
     Route: 030
  3. NOZINAN [Suspect]
     Indication: SCHIZOPHRENIA
     Dosage: 50 MG IN THE MORNING, 50 MG IN MIDDAY, 25 MG IN THE EVENING, 50 MG AT NIGHT
     Route: 065
  4. QUETIAPINE FUMARATE [Suspect]
     Indication: SCHIZOPHRENIA
     Route: 048
     Dates: start: 20120101

REACTIONS (1)
  - CARDIAC ARREST [None]
